FAERS Safety Report 16045112 (Version 1)
Quarter: 2019Q1

REPORT INFORMATION
  Report Type: Spontaneous
  Country: CN (occurrence: CN)
  Receive Date: 20190307
  Receipt Date: 20190307
  Transmission Date: 20190418
  Serious: Yes (Other)
  Sender: FDA-Public Use
  Company Number: CN-UNITED THERAPEUTICS-UNT-2019-003942

PATIENT
  Age: 0 Year
  Sex: Female
  Weight: 2.5 kg

DRUGS (4)
  1. REMODULIN [Suspect]
     Active Substance: TREPROSTINIL
     Indication: PRODUCT USED FOR UNKNOWN INDICATION
     Dosage: 0.010 ?G/KG, CONTINUING (TOTAL DAILY DOSE: 936 ?G)
     Route: 064
     Dates: start: 20190121, end: 20190129
  2. REMODULIN [Suspect]
     Active Substance: TREPROSTINIL
     Indication: PRODUCT USED FOR UNKNOWN INDICATION
     Dosage: 0.00125 ?G/KG, CONTINUING (TOTAL DAILY DOSE: 117 ?G)
     Route: 064
     Dates: start: 20190115, end: 20190117
  3. REMODULIN [Suspect]
     Active Substance: TREPROSTINIL
     Dosage: 0.00375 ?G/KG, CONTINUING (TOTAL DAILY DOSE: 351 ?G)
     Route: 064
     Dates: start: 20190117, end: 20190121
  4. REMODULIN [Suspect]
     Active Substance: TREPROSTINIL
     Dosage: 0.010 ?G/KG, CONTINUING (TOTAL DAILY DOSE: 936 ?G)
     Route: 064
     Dates: start: 20190129, end: 20190130

REACTIONS (2)
  - Premature baby [Unknown]
  - Foetal exposure during pregnancy [Unknown]

NARRATIVE: CASE EVENT DATE: 20190115
